FAERS Safety Report 10067767 (Version 2)
Quarter: 2014Q2

REPORT INFORMATION
  Report Type: Spontaneous
  Country: US (occurrence: None)
  Receive Date: 20140407
  Receipt Date: 20140414
  Transmission Date: 20141212
  Serious: Yes (Other)
  Sender: FDA-Public Use
  Company Number: 140103

PATIENT
  Age: 35 Year
  Sex: Female
  Weight: 52.16 kg

DRUGS (4)
  1. SUPREP BOWEL PREP KIT [Suspect]
     Indication: COLONOSCOPY
     Dosage: 2 X 6OZ BOTTLE 1X
     Route: 048
     Dates: start: 20140327, end: 20140328
  2. PROPRANOLOL [Concomitant]
  3. MULTIVITAMINS [Concomitant]
  4. PRENATAL VITAMINS [Concomitant]

REACTIONS (4)
  - Hallucination, auditory [None]
  - Tremor [None]
  - Panic attack [None]
  - Hallucination, visual [None]
